FAERS Safety Report 5251400-1 (Version None)
Quarter: 2007Q1

REPORT INFORMATION
  Report Type: 
  Country: None (occurrence: None)
  Receive Date: 20070228
  Receipt Date: 20060615
  Transmission Date: 20070707
  Serious: No
  Sender: FDA-Public Use
  Company Number: US-GLAXOSMITHKLINE-A0604415A

PATIENT
  Age: 48 Year
  Sex: Female

DRUGS (6)
  1. LAMICTAL [Suspect]
     Indication: BIPOLAR DISORDER
     Route: 048
  2. CYMBALTA [Concomitant]
     Indication: DEPRESSION
     Route: 048
  3. GEODON [Concomitant]
     Route: 048
  4. SEROQUEL [Concomitant]
     Route: 048
  5. ELAVIL [Concomitant]
     Indication: DEPRESSION
     Route: 048
  6. BENADRYL [Concomitant]
     Indication: ADVERSE EVENT
     Route: 048

REACTIONS (2)
  - PRURITUS [None]
  - RASH [None]
